FAERS Safety Report 17855327 (Version 1)
Quarter: 2020Q2

REPORT INFORMATION
  Report Type: Spontaneous
  Country: US (occurrence: US)
  Receive Date: 20200602
  Receipt Date: 20200602
  Transmission Date: 20200714
  Serious: Yes (Hospitalization)
  Sender: FDA-Public Use
  Company Number: None

PATIENT
  Age: 84 Year
  Sex: Male

DRUGS (2)
  1. IMATINIB 400MG [Suspect]
     Active Substance: IMATINIB
     Indication: PROSTATE CANCER
     Route: 048
  2. IMATINIB. [Concomitant]
     Active Substance: IMATINIB MESYLATE
     Dates: start: 20200318

REACTIONS (1)
  - Coronary artery bypass [None]

NARRATIVE: CASE EVENT DATE: 20200527
